FAERS Safety Report 9290574 (Version 1)
Quarter: 2013Q2

REPORT INFORMATION
  Report Type: Spontaneous
  Country: GB (occurrence: GB)
  Receive Date: 20130515
  Receipt Date: 20130515
  Transmission Date: 20140414
  Serious: Yes (Other)
  Sender: FDA-Public Use
  Company Number: GB-CELGENEUS-167-FK228-13050173

PATIENT
  Sex: 0

DRUGS (2)
  1. ROMIDEPSIN [Suspect]
     Indication: MYCOSIS FUNGOIDES REFRACTORY
     Dosage: 14 MILLIGRAM/SQ. METER
     Route: 041
  2. HEPARIN [Concomitant]
     Indication: VENA CAVA THROMBOSIS
     Route: 065

REACTIONS (7)
  - Atrioventricular block [Unknown]
  - Cardiac tamponade [Unknown]
  - Pleural effusion [Unknown]
  - Tumour lysis syndrome [Unknown]
  - Troponin I increased [Unknown]
  - Ventricular tachycardia [Unknown]
  - Hypoalbuminaemia [Unknown]
